FAERS Safety Report 12077811 (Version 1)
Quarter: 2016Q1

REPORT INFORMATION
  Report Type: Spontaneous
  Country: US (occurrence: US)
  Receive Date: 20160215
  Receipt Date: 20160215
  Transmission Date: 20160526
  Serious: No
  Sender: FDA-Public Use
  Company Number: US-GLAXOSMITHKLINE-US2016020225

PATIENT
  Age: 65 Year
  Sex: Female

DRUGS (1)
  1. NICODERM CQ [Suspect]
     Active Substance: NICOTINE
     Indication: SMOKING CESSATION THERAPY
     Dosage: 21 MG, UNK
     Dates: start: 20160207, end: 20160210

REACTIONS (5)
  - Somnolence [Unknown]
  - Malaise [Unknown]
  - Nightmare [Unknown]
  - Hunger [Unknown]
  - Drug interaction [Unknown]

NARRATIVE: CASE EVENT DATE: 20160207
